FAERS Safety Report 5098680-3 (Version None)
Quarter: 2006Q3

REPORT INFORMATION
  Report Type: 
  Country: None (occurrence: None)
  Receive Date: 20060905
  Receipt Date: 20060821
  Transmission Date: 20061208
  Serious: Yes (Death)
  Sender: FDA-Public Use
  Company Number: 2006SP000015

PATIENT
  Age: 75 Year
  Sex: Male

DRUGS (1)
  1. IMDUR [Suspect]
     Dosage: 60 MG

REACTIONS (1)
  - DEATH [None]
